FAERS Safety Report 9221203 (Version 1)
Quarter: 2013Q2

REPORT INFORMATION
  Report Type: Spontaneous
  Country: US (occurrence: US)
  Receive Date: 20130410
  Receipt Date: 20130410
  Transmission Date: 20140414
  Serious: No
  Sender: FDA-Public Use
  Company Number: US-009507513-1304USA003744

PATIENT
  Sex: Female

DRUGS (1)
  1. SAPHRIS [Suspect]
     Dosage: UNK
     Dates: start: 2013, end: 2013

REACTIONS (1)
  - Tachycardia [Unknown]
